FAERS Safety Report 25770928 (Version 3)
Quarter: 2025Q3

REPORT INFORMATION
  Report Type: Spontaneous
  Country: CA (occurrence: CA)
  Receive Date: 20250908
  Receipt Date: 20250923
  Transmission Date: 20251020
  Serious: Yes (Hospitalization, Disabling)
  Sender: CELLTRION
  Company Number: CA-CELLTRION INC.-2024CA020287

PATIENT

DRUGS (8)
  1. INFLIXIMAB [Suspect]
     Active Substance: INFLIXIMAB
     Indication: Crohn^s disease
     Route: 042
     Dates: start: 20250410
  2. YUFLYMA [Suspect]
     Active Substance: ADALIMUMAB-AATY
     Indication: Crohn^s disease
     Dosage: 80 MG, Q2WEEKS
     Route: 058
     Dates: start: 20240816
  3. YUFLYMA [Suspect]
     Active Substance: ADALIMUMAB-AATY
     Dosage: 80 MG, Q2WEEKS
     Route: 058
     Dates: start: 20240817
  4. YUFLYMA [Suspect]
     Active Substance: ADALIMUMAB-AATY
     Dosage: 40 MG, EVERY 14 DAYS
     Route: 058
     Dates: start: 20240806
  5. VIT D [VITAMIN D NOS] [Concomitant]
     Indication: Product used for unknown indication
     Route: 065
  6. VITAMIN B12 [Concomitant]
     Active Substance: CYANOCOBALAMIN
     Indication: Product used for unknown indication
     Route: 065
  7. DOXYCYCLINE [Concomitant]
     Active Substance: DOXYCYCLINE
     Indication: Hidradenitis
     Route: 065
  8. DIETARY SUPPLEMENT [Concomitant]
     Active Substance: DIETARY SUPPLEMENT
     Indication: Product used for unknown indication
     Route: 065

REACTIONS (5)
  - Intervertebral disc protrusion [Unknown]
  - Pain [Unknown]
  - Drug ineffective [Unknown]
  - Intentional product use issue [Unknown]
  - Therapy interrupted [Unknown]
